FAERS Safety Report 5972779-9 (Version None)
Quarter: 2008Q4

REPORT INFORMATION
  Report Type: 
  Country: None (occurrence: None)
  Receive Date: 20081201
  Receipt Date: 20081121
  Transmission Date: 20090506
  Serious: Yes (Other)
  Sender: FDA-Public Use
  Company Number: US-MERCK-0805USA02808

PATIENT
  Age: 54 Year
  Sex: Female

DRUGS (1)
  1. FOSAMAX [Suspect]
     Route: 048
     Dates: start: 19980101, end: 20040101

REACTIONS (12)
  - ARTHRITIS [None]
  - BONE DISORDER [None]
  - COLITIS [None]
  - DYSPHAGIA [None]
  - HAEMORRHOIDS [None]
  - INTERVERTEBRAL DISC DEGENERATION [None]
  - OSTEONECROSIS [None]
  - PANCREATITIS RELAPSING [None]
  - POST PROCEDURAL HAEMORRHAGE [None]
  - THYROID DISORDER [None]
  - TOOTH DISORDER [None]
  - VENOUS INSUFFICIENCY [None]
